FAERS Safety Report 5870149-5 (Version None)
Quarter: 2008Q3

REPORT INFORMATION
  Report Type: 
  Country: None (occurrence: None)
  Receive Date: 20080904
  Receipt Date: 20080826
  Transmission Date: 20090109
  Serious: Yes (Hospitalization)
  Sender: FDA-Public Use
  Company Number: DE-BAYER-200824107GPV

PATIENT
  Age: 79 Year
  Sex: Male

DRUGS (5)
  1. VARDENAFIL 10 MG BID [Suspect]
     Indication: HYPERTONIC BLADDER
     Dosage: TOTAL DAILY DOSE: 20 MG
     Route: 048
     Dates: start: 20080719, end: 20080725
  2. CRATAEGUTT NOVO [Concomitant]
     Indication: CARDIAC FAILURE
     Route: 065
     Dates: start: 20020101
  3. DIGOXIN [Concomitant]
     Indication: CARDIAC FAILURE
     Route: 065
     Dates: start: 20020101
  4. PLAVIX [Concomitant]
     Indication: ATRIAL FIBRILLATION
     Route: 065
     Dates: start: 20020101
  5. AMARYL [Concomitant]
     Indication: DIABETES MELLITUS
     Route: 065
     Dates: start: 20070101

REACTIONS (5)
  - DIARRHOEA [None]
  - FAECES DISCOLOURED [None]
  - HAEMORRHOIDS [None]
  - RENAL ARTERY STENOSIS [None]
  - RENAL CYST [None]
